FAERS Safety Report 16364619 (Version 1)
Quarter: 2019Q2

REPORT INFORMATION
  Report Type: Spontaneous
  Country: US (occurrence: US)
  Receive Date: 20190529
  Receipt Date: 20190529
  Transmission Date: 20190711
  Serious: No
  Sender: FDA-Public Use
  Company Number: US-MEDIMETRIKS-2018-US-012500

PATIENT
  Age: 64 Year
  Sex: Male

DRUGS (1)
  1. FLUOCINOLONE ACETONIDE CREAM 0.025% 60G [Suspect]
     Active Substance: FLUOCINOLONE ACETONIDE
     Indication: SEBORRHOEIC DERMATITIS
     Dosage: TOPICALLY ONCE EVERY OTHER DAY
     Route: 061
     Dates: start: 20180323, end: 20180501

REACTIONS (1)
  - Drug ineffective [Unknown]

NARRATIVE: CASE EVENT DATE: 20180323
